FAERS Safety Report 8623677-3 (Version None)
Quarter: 2012Q3

REPORT INFORMATION
  Report Type: 
  Country: None (occurrence: None)
  Receive Date: 20120827
  Receipt Date: 20120816
  Transmission Date: 20120928
  Serious: Yes (Other)
  Sender: FDA-Public Use
  Company Number: JP-PFIZER INC-2012207605

PATIENT
  Age: 80 Year
  Sex: Female

DRUGS (6)
  1. CELEBREX [Suspect]
     Dosage: UNK
     Route: 048
  2. GANATON [Concomitant]
     Dosage: UNK
  3. SIGMART [Concomitant]
     Dosage: UNK
  4. VESICARE [Suspect]
     Dosage: UNK
     Route: 048
  5. OMEPRAZOLE [Concomitant]
     Dosage: UNK
  6. FAMOTIDINE [Concomitant]
     Dosage: UNK

REACTIONS (1)
  - COLONIC POLYP [None]
